FAERS Safety Report 8839469 (Version 1)
Quarter: 2012Q4

REPORT INFORMATION
  Report Type: Spontaneous
  Country: US (occurrence: None)
  Receive Date: 20121012
  Receipt Date: 20121012
  Transmission Date: 20130627
  Serious: Yes (Death)
  Sender: FDA-Public Use
  Company Number: None

PATIENT
  Age: 69 Year
  Sex: Female
  Weight: 63.5 kg

DRUGS (2)
  1. PLAVIX [Suspect]
     Indication: STROKE
     Route: 048
     Dates: start: 20120827, end: 20120908
  2. PLAVIX [Suspect]
     Indication: MYOCARDIAL INFARCT PROPHYLAXIS
     Route: 048
     Dates: start: 20120827, end: 20120908

REACTIONS (4)
  - Haemorrhage [None]
  - Contusion [None]
  - Paralysis [None]
  - Hypertension [None]
